FAERS Safety Report 20693937 (Version 3)
Quarter: 2022Q3

REPORT INFORMATION
  Report Type: Spontaneous
  Country: CA (occurrence: CA)
  Receive Date: 20220411
  Receipt Date: 20220928
  Transmission Date: 20221027
  Serious: Yes (Other)
  Sender: FDA-Public Use
  Company Number: CA-CELLTRION INC.-2020CA022272

PATIENT

DRUGS (19)
  1. INFLECTRA [Suspect]
     Active Substance: INFLIXIMAB-DYYB
     Indication: Crohn^s disease
     Dosage: 500 MG EVERY 8 WEEKS
     Route: 042
     Dates: start: 20200311
  2. INFLECTRA [Suspect]
     Active Substance: INFLIXIMAB-DYYB
     Dosage: 500 MG EVERY 8 WEEKS
     Route: 042
     Dates: start: 20200311, end: 20210113
  3. INFLECTRA [Suspect]
     Active Substance: INFLIXIMAB-DYYB
     Dosage: 500 MG EVERY 8 WEEKS
     Route: 042
     Dates: start: 20200506
  4. INFLECTRA [Suspect]
     Active Substance: INFLIXIMAB-DYYB
     Dosage: 500 MG EVERY 8 WEEKS
     Route: 042
     Dates: start: 20200702
  5. INFLECTRA [Suspect]
     Active Substance: INFLIXIMAB-DYYB
     Dosage: 500 MG EVERY 8 WEEKS
     Route: 042
     Dates: start: 20201118
  6. INFLECTRA [Suspect]
     Active Substance: INFLIXIMAB-DYYB
     Dosage: 500 MG EVERY 8 WEEKS
     Route: 042
     Dates: start: 20210113
  7. INFLECTRA [Suspect]
     Active Substance: INFLIXIMAB-DYYB
     Dosage: 500 MG INDUCTION AT 0,2,6 WEEKS FOLLOWED BY MAINTENANCE OF EVERY 8 WEEKS
     Route: 042
     Dates: start: 20210619
  8. INFLECTRA [Suspect]
     Active Substance: INFLIXIMAB-DYYB
     Dosage: 500 MG INDUCTION AT 0,2,6 WEEKS FOLLOWED BY MAINTENANCE OF EVERY 8 WEEKS
     Route: 042
     Dates: start: 20210705
  9. INFLECTRA [Suspect]
     Active Substance: INFLIXIMAB-DYYB
     Dosage: 500 MG INDUCTION AT 0,2,6 WEEKS FOLLOWED BY MAINTENANCE OF EVERY 8 WEEKS
     Route: 042
     Dates: start: 20210805
  10. INFLECTRA [Suspect]
     Active Substance: INFLIXIMAB-DYYB
     Dosage: 500 MG INDUCTION AT 0,2,6 WEEKS FOLLOWED BY MAINTENANCE OF EVERY 8 WEEKS
     Route: 042
     Dates: start: 20210928
  11. INFLECTRA [Suspect]
     Active Substance: INFLIXIMAB-DYYB
     Dosage: 500 MG INDUCTION AT 0,2,6 WEEKS FOLLOWED BY MAINTENANCE OF EVERY 8 WEEKS
     Route: 042
     Dates: start: 20211123
  12. INFLECTRA [Suspect]
     Active Substance: INFLIXIMAB-DYYB
     Dosage: 500 MG INDUCTION AT 0,2,6 WEEKS FOLLOWED BY MAINTENANCE OF EVERY 8 WEEKS
     Route: 042
     Dates: start: 20220203
  13. INFLECTRA [Suspect]
     Active Substance: INFLIXIMAB-DYYB
     Dosage: 500 MG INDUCTION AT 0,2,6 WEEKS FOLLOWED BY MAINTENANCE OF EVERY 8 WEEKS
     Route: 042
     Dates: start: 20220203
  14. INFLECTRA [Suspect]
     Active Substance: INFLIXIMAB-DYYB
     Dosage: 500 MG INDUCTION AT 0,2,6 WEEKS FOLLOWED BY MAINTENANCE OF EVERY 8 WEEKS
     Route: 042
     Dates: start: 20220331
  15. INFLECTRA [Suspect]
     Active Substance: INFLIXIMAB-DYYB
     Dosage: 500 MG INDUCTION AT 0,2,6 WEEKS FOLLOWED BY MAINTENANCE OF EVERY 8 WEEKS
     Route: 042
     Dates: start: 20220524
  16. INFLECTRA [Suspect]
     Active Substance: INFLIXIMAB-DYYB
     Dosage: 500 MG INDUCTION AT 0,2,6 WEEKS FOLLOWED BY MAINTENANCE OF EVERY 8 WEEKS
     Route: 042
     Dates: start: 20220719
  17. INFLECTRA [Suspect]
     Active Substance: INFLIXIMAB-DYYB
     Dosage: 500 MG INDUCTION AT 0,2,6 WEEKS FOLLOWED BY MAINTENANCE OF EVERY 8 WEEKS
     Route: 042
     Dates: start: 20220913
  18. VYVANSE [Concomitant]
     Active Substance: LISDEXAMFETAMINE DIMESYLATE
     Indication: Attention deficit hyperactivity disorder
     Dosage: UNK
     Route: 048
  19. VYVANSE [Concomitant]
     Active Substance: LISDEXAMFETAMINE DIMESYLATE
     Dosage: UNK
     Route: 065

REACTIONS (15)
  - Weight decreased [Not Recovered/Not Resolved]
  - Off label use [Unknown]
  - Off label use [Unknown]
  - Inappropriate schedule of product administration [Unknown]
  - Product dose omission issue [Unknown]
  - Intentional product use issue [Unknown]
  - Condition aggravated [Recovered/Resolved]
  - Headache [Unknown]
  - Cough [Not Recovered/Not Resolved]
  - Nasopharyngitis [Unknown]
  - Mental disorder [Unknown]
  - Depression [Unknown]
  - Arthralgia [Unknown]
  - Malaise [Recovered/Resolved]
  - Abdominal discomfort [Recovered/Resolved]

NARRATIVE: CASE EVENT DATE: 20201118
